FAERS Safety Report 4309963-6 (Version None)
Quarter: 2004Q1

REPORT INFORMATION
  Report Type: 
  Country: None (occurrence: None)
  Receive Date: 20040302
  Receipt Date: 20040219
  Transmission Date: 20041129
  Serious: Yes (Other)
  Sender: FDA-Public Use
  Company Number: FLUV00303002819

PATIENT
  Age: 28 Year
  Sex: Male

DRUGS (2)
  1. DEPROMEL (FLUVOXAMINE MALEATE) [Suspect]
     Indication: PANIC DISORDER
     Dosage: 50 MG DAILY PO, 150 MG DAILY PO
     Route: 048
  2. ALPRAZOLAM [Concomitant]

REACTIONS (10)
  - AFFECTIVE DISORDER [None]
  - CYCLOTHYMIC DISORDER [None]
  - DECREASED INTEREST [None]
  - DELUSION [None]
  - DELUSION OF REFERENCE [None]
  - HALLUCINATION, AUDITORY [None]
  - HYPERVIGILANCE [None]
  - PSYCHOTIC DISORDER [None]
  - SCHIZOPHRENIA [None]
  - THOUGHT BROADCASTING [None]
